FAERS Safety Report 21782449 (Version 1)
Quarter: 2022Q4

REPORT INFORMATION
  Report Type: Spontaneous
  Country: GB (occurrence: GB)
  Receive Date: 20221227
  Receipt Date: 20221227
  Transmission Date: 20230113
  Serious: Yes (Other)
  Sender: FDA-Public Use
  Company Number: GB-TAKEDA-2022TUS099472

PATIENT
  Sex: Male

DRUGS (15)
  1. LISDEXAMFETAMINE DIMESYLATE [Suspect]
     Active Substance: LISDEXAMFETAMINE DIMESYLATE
     Indication: Product used for unknown indication
     Dosage: 70 MILLIGRAM
     Route: 065
  2. INTUNIV [Concomitant]
     Active Substance: GUANFACINE HYDROCHLORIDE
     Indication: Product used for unknown indication
     Dosage: UNK
     Route: 065
  3. MELATONIN [Concomitant]
     Active Substance: MELATONIN
     Dosage: 2 MILLIGRAM, QD
  4. MELATONIN [Concomitant]
     Active Substance: MELATONIN
     Dosage: 10 MILLIGRAM, QD
  5. IMIPRAMINE [Concomitant]
     Active Substance: IMIPRAMINE
     Dosage: 150 MILLIGRAM, QD
  6. METHYLPHENIDATE [Concomitant]
     Active Substance: METHYLPHENIDATE
     Dosage: 20 MILLIGRAM, QD
  7. AMFEXA [Concomitant]
     Dosage: 5 MILLIGRAM, BID
  8. AMFEXA [Concomitant]
     Dosage: 10 MILLIGRAM, BID
  9. CIALIS [Concomitant]
     Active Substance: TADALAFIL
     Dosage: 5 MILLIGRAM
     Route: 065
  10. CYCLIZINE [Concomitant]
     Active Substance: CYCLIZINE
     Dosage: UNK
  11. SERTRALINE [Concomitant]
     Active Substance: SERTRALINE HYDROCHLORIDE
  12. PAROXETINE [Concomitant]
     Active Substance: PAROXETINE
  13. ZOPICLONE [Concomitant]
     Active Substance: ZOPICLONE
     Dosage: UNK
  14. CHOLECALCIFEROL [Concomitant]
     Active Substance: CHOLECALCIFEROL
     Dosage: UNK
  15. ALVERINE CITRATE [Concomitant]
     Active Substance: ALVERINE CITRATE

REACTIONS (4)
  - Poisoning [Unknown]
  - Drug abuse [Unknown]
  - Physical assault [Unknown]
  - Toxicity to various agents [Unknown]
